FAERS Safety Report 5699778-9 (Version None)
Quarter: 2008Q2

REPORT INFORMATION
  Report Type: 
  Country: None (occurrence: None)
  Receive Date: 20080410
  Receipt Date: 20080410
  Transmission Date: 20081010
  Serious: No
  Sender: FDA-Public Use
  Company Number: None

PATIENT
  Sex: Female
  Weight: 62.5964 kg

DRUGS (1)
  1. HEPARIN [Suspect]

REACTIONS (9)
  - BLOOD PRESSURE DECREASED [None]
  - BURNING SENSATION [None]
  - COLD SWEAT [None]
  - HEART RATE INCREASED [None]
  - HYPERHIDROSIS [None]
  - INJECTION SITE IRRITATION [None]
  - NAUSEA [None]
  - NONSPECIFIC REACTION [None]
  - VERTIGO [None]
